FAERS Safety Report 17530318 (Version 9)
Quarter: 2020Q4

REPORT INFORMATION
  Report Type: Report from Study
  Country: US (occurrence: US)
  Receive Date: 20200312
  Receipt Date: 20201114
  Transmission Date: 20210113
  Serious: Yes (Other)
  Sender: FDA-Public Use
  Company Number: NVSC2020US063032

PATIENT
  Sex: Male

DRUGS (1)
  1. BEOVU [Suspect]
     Active Substance: BROLUCIZUMAB-DBLL
     Indication: NEOVASCULAR AGE-RELATED MACULAR DEGENERATION
     Dosage: UNK
     Route: 047
     Dates: start: 20191128

REACTIONS (11)
  - Glaucoma [Unknown]
  - Central vision loss [Unknown]
  - Visual acuity reduced [Unknown]
  - Drug ineffective [Unknown]
  - Ocular hyperaemia [Unknown]
  - Macular degeneration [Not Recovered/Not Resolved]
  - Strabismus [Unknown]
  - Visual impairment [Unknown]
  - Reading disorder [Unknown]
  - Injury associated with device [Unknown]
  - Product administration error [Unknown]
